FAERS Safety Report 25633809 (Version 1)
Quarter: 2025Q3

REPORT INFORMATION
  Report Type: Report from Study
  Country: CL (occurrence: CL)
  Receive Date: 20250801
  Receipt Date: 20250801
  Transmission Date: 20251021
  Serious: Yes (Death, Other)
  Sender: PFIZER
  Company Number: CL-PFIZER INC-202500154917

PATIENT
  Sex: Male

DRUGS (3)
  1. LINEZOLID [Suspect]
     Active Substance: LINEZOLID
     Indication: Disseminated tuberculosis
  2. MEROPENEM [Suspect]
     Active Substance: MEROPENEM
     Indication: Disseminated tuberculosis
  3. LEVOFLOXACIN [Suspect]
     Active Substance: LEVOFLOXACIN
     Indication: Disseminated tuberculosis

REACTIONS (2)
  - Gastrointestinal haemorrhage [Fatal]
  - Anaemia [Fatal]
